FAERS Safety Report 5238799-7 (Version None)
Quarter: 2007Q1

REPORT INFORMATION
  Report Type: 
  Country: None (occurrence: None)
  Receive Date: 20070215
  Receipt Date: 20070205
  Transmission Date: 20070707
  Serious: Yes (Life-Threatening, Hospitalization, Other)
  Sender: FDA-Public Use
  Company Number: JP-PFIZER INC-2006144524

PATIENT
  Sex: Female

DRUGS (3)
  1. LIPITOR [Suspect]
     Indication: HYPERLIPIDAEMIA
     Route: 048
     Dates: start: 20021213, end: 20061012
  2. MAGNESIUM OXIDE [Concomitant]
     Indication: CONSTIPATION
     Route: 048
  3. ASPIRIN [Concomitant]
     Indication: LACUNAR INFARCTION
     Dosage: DAILY DOSE:100MG
     Route: 048
     Dates: start: 20021213, end: 20061012

REACTIONS (1)
  - LIVER DISORDER [None]
